FAERS Safety Report 8380778-5 (Version None)
Quarter: 2012Q2

REPORT INFORMATION
  Report Type: 
  Country: None (occurrence: None)
  Receive Date: 20120523
  Receipt Date: 20120509
  Transmission Date: 20120825
  Serious: Yes (Hospitalization)
  Sender: FDA-Public Use
  Company Number: CA-ROCHE-1067787

PATIENT
  Sex: Female
  Weight: 78.088 kg

DRUGS (5)
  1. METHOTREXATE [Concomitant]
  2. FOLIC ACID [Concomitant]
  3. SYNTHROID [Concomitant]
  4. CELEXA [Concomitant]
  5. ACTEMRA [Suspect]
     Indication: RHEUMATOID ARTHRITIS
     Route: 042
     Dates: start: 20111121

REACTIONS (3)
  - PHARYNGEAL OEDEMA [None]
  - SWOLLEN TONGUE [None]
  - LIP SWELLING [None]
